FAERS Safety Report 7217237-9 (Version None)
Quarter: 2010Q4

REPORT INFORMATION
  Report Type: 
  Country: None (occurrence: None)
  Receive Date: 20101230
  Receipt Date: 20100301
  Transmission Date: 20110411
  Serious: Yes (Other)
  Sender: FDA-Public Use
  Company Number: DSA_42712_2010

PATIENT
  Age: 64 Year
  Sex: Female

DRUGS (5)
  1. ENALAPRIL MALEATE [Suspect]
     Indication: HYPERTENSION
     Dosage: (10 MG QD ORAL)
     Route: 048
     Dates: start: 20091215
  2. SYMBICORT [Concomitant]
  3. VAGIFEM [Concomitant]
  4. SPIRIVA [Concomitant]
  5. BIRCANYL /00199202/ [Concomitant]

REACTIONS (2)
  - DYSPNOEA [None]
  - OEDEMA PERIPHERAL [None]
